FAERS Safety Report 5001536-5 (Version None)
Quarter: 2006Q2

REPORT INFORMATION
  Report Type: 
  Country: None (occurrence: None)
  Receive Date: 20060510
  Receipt Date: 20060428
  Transmission Date: 20061013
  Serious: Yes (Death, Other)
  Sender: FDA-Public Use
  Company Number: 2006058772

PATIENT
  Sex: 0

DRUGS (1)
  1. DOSTINEX [Suspect]
     Indication: ILL-DEFINED DISORDER
     Dosage: PLACENTAL
     Route: 064

REACTIONS (4)
  - DRUG EXPOSURE BEFORE PREGNANCY [None]
  - INTRA-UTERINE DEATH [None]
  - MATERNAL DRUGS AFFECTING FOETUS [None]
  - PREGNANCY [None]
